FAERS Safety Report 6804115-X (Version None)
Quarter: 2010Q2

REPORT INFORMATION
  Report Type: 
  Country: None (occurrence: None)
  Receive Date: 20100628
  Receipt Date: 20070404
  Transmission Date: 20101027
  Serious: No
  Sender: FDA-Public Use
  Company Number: US-PFIZER INC-2006129491

PATIENT
  Sex: Male
  Weight: 75.75 kg

DRUGS (7)
  1. GENOTROPIN [Suspect]
     Indication: HYPOPITUITARISM
  2. ANDROGEL [Concomitant]
  3. HYDROCORTISONE [Concomitant]
  4. SYNTHROID [Concomitant]
  5. MONTELUKAST [Concomitant]
  6. NASONEX [Concomitant]
  7. LIPITOR [Concomitant]

REACTIONS (1)
  - DRUG INEFFECTIVE [None]
